FAERS Safety Report 20937950 (Version 1)
Quarter: 2022Q2

REPORT INFORMATION
  Report Type: Report from Study
  Country: US (occurrence: US)
  Receive Date: 20220609
  Receipt Date: 20220609
  Transmission Date: 20220721
  Serious: Yes (Hospitalization)
  Sender: FDA-Public Use
  Company Number: US-MYLANLABS-2022M1043584

PATIENT
  Age: 78 Year
  Sex: Male

DRUGS (16)
  1. QUETIAPINE [Suspect]
     Active Substance: QUETIAPINE
     Indication: Dementia with Lewy bodies
     Dosage: UNK
  2. QUETIAPINE [Suspect]
     Active Substance: QUETIAPINE
     Indication: Neuropsychiatric symptoms
  3. OLANZAPINE [Suspect]
     Active Substance: OLANZAPINE
     Indication: Dementia with Lewy bodies
     Dosage: UNK
  4. OLANZAPINE [Suspect]
     Active Substance: OLANZAPINE
     Indication: Neuropsychiatric symptoms
  5. MIRTAZAPINE [Suspect]
     Active Substance: MIRTAZAPINE
     Indication: Dementia with Lewy bodies
     Dosage: UNK
  6. MIRTAZAPINE [Suspect]
     Active Substance: MIRTAZAPINE
     Indication: Neuropsychiatric symptoms
  7. BUSPIRONE [Suspect]
     Active Substance: BUSPIRONE HYDROCHLORIDE
     Indication: Dementia with Lewy bodies
     Dosage: UNK
  8. BUSPIRONE [Suspect]
     Active Substance: BUSPIRONE HYDROCHLORIDE
     Indication: Neuropsychiatric symptoms
  9. LORAZEPAM [Suspect]
     Active Substance: LORAZEPAM
     Indication: Dementia with Lewy bodies
     Dosage: UNK
  10. LORAZEPAM [Suspect]
     Active Substance: LORAZEPAM
     Indication: Neuropsychiatric symptoms
  11. ZOLPIDEM [Suspect]
     Active Substance: ZOLPIDEM TARTRATE
     Indication: Dementia with Lewy bodies
     Dosage: UNK
  12. ZOLPIDEM [Suspect]
     Active Substance: ZOLPIDEM TARTRATE
     Indication: Neuropsychiatric symptoms
  13. DONEPEZIL [Suspect]
     Active Substance: DONEPEZIL
     Indication: Dementia with Lewy bodies
     Dosage: UNK
  14. DONEPEZIL [Suspect]
     Active Substance: DONEPEZIL
     Indication: Neuropsychiatric symptoms
  15. RIVASTIGMINE [Suspect]
     Active Substance: RIVASTIGMINE
     Indication: Dementia with Lewy bodies
     Dosage: UNK
  16. RIVASTIGMINE [Suspect]
     Active Substance: RIVASTIGMINE
     Indication: Neuropsychiatric symptoms

REACTIONS (2)
  - Treatment failure [Unknown]
  - Adverse drug reaction [Unknown]
